FAERS Safety Report 18355547 (Version 1)
Quarter: 2020Q4

REPORT INFORMATION
  Report Type: Report from Study
  Country: JP (occurrence: JP)
  Receive Date: 20201007
  Receipt Date: 20201007
  Transmission Date: 20210114
  Serious: Yes (Life-Threatening, Hospitalization)
  Sender: FDA-Public Use
  Company Number: JP-JNJFOC-A-CH2017-151951

PATIENT
  Age: 62 Year
  Sex: Male
  Weight: 61.8 kg

DRUGS (12)
  1. FOLIAMIN [Concomitant]
     Active Substance: FOLIC ACID
  2. DAIPHEN [Suspect]
     Active Substance: SULFAMETHOXAZOLE\TRIMETHOPRIM
     Dosage: 1 DF, QD
     Route: 048
     Dates: start: 20161122
  3. PREDNISOLONE. [Concomitant]
     Active Substance: PREDNISOLONE
  4. DAIPHEN [Suspect]
     Active Substance: SULFAMETHOXAZOLE\TRIMETHOPRIM
     Indication: PNEUMOCYSTIS JIROVECII PNEUMONIA
     Dosage: 1 DF, QD
     Route: 048
     Dates: start: 20161028, end: 20161107
  5. RENIVACE [Concomitant]
     Active Substance: ENALAPRIL
  6. ALFAROL [Concomitant]
     Active Substance: ALFACALCIDOL
  7. OPSUMIT [Suspect]
     Active Substance: MACITENTAN
     Indication: PULMONARY ARTERIAL HYPERTENSION
     Dosage: 10 MG, QD
     Route: 048
     Dates: start: 20161022
  8. REVATIO [Concomitant]
     Active Substance: SILDENAFIL CITRATE
  9. CYCLOPHOSPHAMIDE. [Suspect]
     Active Substance: CYCLOPHOSPHAMIDE
     Indication: PRODUCT USED FOR UNKNOWN INDICATION
     Dosage: 500 MG, QD
     Route: 065
     Dates: start: 20161024, end: 20170404
  10. PREDONINE [Concomitant]
     Active Substance: PREDNISOLONE
  11. ADALAT [Concomitant]
     Active Substance: NIFEDIPINE
  12. VITAMEDIN [Concomitant]
     Active Substance: CYANOCOBALAMIN\PYRIDOXINE HYDROCHLORIDE\THIAMINE

REACTIONS (6)
  - Platelet count decreased [Not Recovered/Not Resolved]
  - Anaemia [Not Recovered/Not Resolved]
  - Ascites [Recovering/Resolving]
  - Rheumatoid arthritis [Recovering/Resolving]
  - Plasmapheresis [Unknown]
  - Cell-free and concentrated ascites reinfusion therapy [Unknown]

NARRATIVE: CASE EVENT DATE: 20161104
